FAERS Safety Report 23729214 (Version 1)
Quarter: 2024Q2

REPORT INFORMATION
  Report Type: Spontaneous
  Country: US (occurrence: US)
  Receive Date: 20240410
  Receipt Date: 20240410
  Transmission Date: 20240715
  Serious: No
  Sender: FDA-Public Use
  Company Number: US-MELINTA THERAPEUTICS, LLC-US-MLNT-24-00177

PATIENT

DRUGS (2)
  1. REZZAYO [Suspect]
     Active Substance: REZAFUNGIN
     Indication: Candida infection
     Dosage: 400 MILLIGRAM, SINGLE
     Route: 042
  2. REZZAYO [Suspect]
     Active Substance: REZAFUNGIN
     Indication: Osteomyelitis fungal
     Dosage: 200 MILLIGRAM, WEEKLY BY A PLANNED 6 WEEKS
     Route: 042

REACTIONS (4)
  - Product prescribing issue [Unknown]
  - Product use issue [Unknown]
  - Product dose omission issue [Unknown]
  - No adverse event [Unknown]
